FAERS Safety Report 6771651-4 (Version None)
Quarter: 2010Q2

REPORT INFORMATION
  Report Type: 
  Country: None (occurrence: None)
  Receive Date: 20100611
  Receipt Date: 20100602
  Transmission Date: 20101027
  Serious: Yes (Other)
  Sender: FDA-Public Use
  Company Number: 2010SP030469

PATIENT
  Age: 17 Year
  Sex: Female
  Weight: 50 kg

DRUGS (1)
  1. NUVARING [Suspect]
     Indication: CONTRACEPTION
     Dosage: ;QM;VAG
     Route: 067
     Dates: start: 20090101, end: 20100529

REACTIONS (3)
  - APPENDIX DISORDER [None]
  - COMPLICATION OF DEVICE REMOVAL [None]
  - INCORRECT DRUG ADMINISTRATION DURATION [None]
